FAERS Safety Report 20939642 (Version 1)
Quarter: 2022Q2

REPORT INFORMATION
  Report Type: Spontaneous
  Country: PT (occurrence: PT)
  Receive Date: 20220609
  Receipt Date: 20220609
  Transmission Date: 20220721
  Serious: Yes (Hospitalization)
  Sender: FDA-Public Use
  Company Number: PT-009507513-2203PRT007408

PATIENT
  Age: 67 Year
  Sex: Male

DRUGS (2)
  1. PEMETREXED [Suspect]
     Active Substance: PEMETREXED
     Indication: Product used for unknown indication
     Dosage: UNK, CYCLICAL
     Route: 065
  2. PEMBROLIZUMAB [Suspect]
     Active Substance: PEMBROLIZUMAB
     Indication: Lung adenocarcinoma stage IV
     Dosage: 200 MILLIGRAM, EVERY 3 WEEKS
     Route: 065

REACTIONS (7)
  - Tubulointerstitial nephritis [Recovered/Resolved]
  - Malignant neoplasm progression [Unknown]
  - Blood creatinine abnormal [Unknown]
  - Leukocyturia [Unknown]
  - Asthenia [Unknown]
  - Oedema peripheral [Unknown]
  - Decreased appetite [Unknown]
